FAERS Safety Report 5355161-7 (Version None)
Quarter: 2007Q2

REPORT INFORMATION
  Report Type: 
  Country: None (occurrence: None)
  Receive Date: 20070611
  Receipt Date: 20070531
  Transmission Date: 20071010
  Serious: Yes (Hospitalization)
  Sender: FDA-Public Use
  Company Number: TAP2007Q00622

PATIENT
  Age: 28 Year
  Sex: Female

DRUGS (3)
  1. LUPRON [Suspect]
     Indication: ASSISTED FERTILISATION
     Dates: start: 20070101
  2. GONAL-F [Suspect]
     Indication: ASSISTED FERTILISATION
     Dates: start: 20070329, end: 20070401
  3. PROGESTERONE [Concomitant]

REACTIONS (4)
  - DRUG EXPOSURE BEFORE PREGNANCY [None]
  - MULTIPLE PREGNANCY [None]
  - OVARIAN DISORDER [None]
  - OVARIAN HYPERSTIMULATION SYNDROME [None]
